FAERS Safety Report 15281593 (Version 1)
Quarter: 2018Q3

REPORT INFORMATION
  Report Type: Other
  Country: NL (occurrence: NL)
  Receive Date: 20180815
  Receipt Date: 20180815
  Transmission Date: 20181010
  Serious: Yes (Hospitalization, Other)
  Sender: FDA-Public Use
  Company Number: NL-RARE DISEASE THERAPEUTICS, INC.-2053772

PATIENT
  Age: 63 Year
  Sex: Male

DRUGS (9)
  1. CLOFARABINE. [Suspect]
     Active Substance: CLOFARABINE
     Route: 065
     Dates: start: 20140624, end: 20140905
  2. METHOTREXATE. [Suspect]
     Active Substance: METHOTREXATE
     Route: 037
     Dates: start: 20150304, end: 20150708
  3. IMATINIB [Suspect]
     Active Substance: IMATINIB
     Route: 065
     Dates: start: 20140630, end: 20150811
  4. PURIXAN [Suspect]
     Active Substance: MERCAPTOPURINE
     Indication: ACUTE LYMPHOCYTIC LEUKAEMIA
     Route: 065
     Dates: start: 20150304, end: 20150721
  5. PREDNISONE. [Suspect]
     Active Substance: PREDNISONE
     Route: 065
     Dates: start: 20150304, end: 20150630
  6. VINCRISTINE [Suspect]
     Active Substance: VINCRISTINE
     Route: 065
     Dates: start: 20150304, end: 20150624
  7. DEXAMETHASONE. [Suspect]
     Active Substance: DEXAMETHASONE
     Route: 037
     Dates: start: 20150304, end: 20150708
  8. METHOTREXATE. [Suspect]
     Active Substance: METHOTREXATE
     Route: 048
     Dates: start: 20150314, end: 20150715
  9. PEGASPARGASE [Suspect]
     Active Substance: PEGASPARGASE
     Route: 065

REACTIONS (1)
  - Ureteric obstruction [Recovered/Resolved]

NARRATIVE: CASE EVENT DATE: 20150815
